FAERS Safety Report 7482160 (Version 2)
Quarter: 2012Q4

REPORT INFORMATION
  Report Type: 
  Country: JP (occurrence: JP)
  Receive Date: 20100716
  Receipt Date: 20120907
  Transmission Date: 20130627
  Serious: Yes (Hospitalization)
  Sender: FDA-Public Use
  Company Number: JP-ELI_LILLY_AND_COMPANY-JP201007002149

PATIENT
  Age: 56 Year
  Sex: Female

DRUGS (1)
  1. GEMZAR [Suspect]
     Indication: PANCREATIC CARCINOMA RECURRENT
     Dosage: 1000 mg, other
     Route: 042
     Dates: end: 2009

REACTIONS (4)
  - Pericardial effusion [Recovered/Resolved]
  - Renal impairment [Unknown]
  - Nausea [Unknown]
  - Fatigue [Unknown]
